FAERS Safety Report 4322256-6 (Version None)
Quarter: 2004Q1

REPORT INFORMATION
  Report Type: 
  Country: None (occurrence: None)
  Receive Date: 20040323
  Receipt Date: 20040312
  Transmission Date: 20041129
  Serious: Yes (Other)
  Sender: FDA-Public Use
  Company Number: PANC00303003570

PATIENT
  Age: 54 Year
  Sex: Male
  Weight: 68 kg

DRUGS (6)
  1. PANKREON GRANULAT (PANCREATIN) [Suspect]
     Indication: PANCREATIC INSUFFICIENCY
     Dosage: UNK DAILY PO
     Dates: start: 19980724, end: 20031216
  2. PANTOZOL (PANTOPRAZOLE SODIUM) [Concomitant]
  3. PERENTEROL (YEAST DRIED) [Concomitant]
  4. QUANTALAN BTL (COLESTYRAMINE) [Concomitant]
  5. PANGROL 2500 (PANCREATIN) [Concomitant]
  6. VITAMIN B KOMPLEX (VITAMIN B KOMPLEX) [Concomitant]

REACTIONS (3)
  - MOUTH HAEMORRHAGE [None]
  - MUCOSAL EROSION [None]
  - STOMATITIS [None]
